FAERS Safety Report 4327176-9 (Version None)
Quarter: 2004Q1

REPORT INFORMATION
  Report Type: 
  Country: None (occurrence: None)
  Receive Date: 20040330
  Receipt Date: 20040319
  Transmission Date: 20041129
  Serious: Yes (Hospitalization)
  Sender: FDA-Public Use
  Company Number: PHRM2004FR01302

PATIENT
  Age: 81 Year
  Sex: Female

DRUGS (1)
  1. TAREG [Suspect]
     Indication: HYPERTENSION
     Dosage: 1 DF, QD
     Route: 048
     Dates: start: 20000615, end: 20031219

REACTIONS (9)
  - ACANTHOLYSIS [None]
  - CORNEAL DISORDER [None]
  - DERMATITIS [None]
  - ECZEMA [None]
  - ECZEMA INFECTED [None]
  - ERYTHEMA [None]
  - PEMPHIGUS [None]
  - RASH PUSTULAR [None]
  - SKIN OEDEMA [None]
